FAERS Safety Report 17978986 (Version 2)
Quarter: 2020Q3

REPORT INFORMATION
  Report Type: Spontaneous
  Country: JP (occurrence: JP)
  Receive Date: 20200703
  Receipt Date: 20200811
  Transmission Date: 20201103
  Serious: Yes (Death, Other)
  Sender: FDA-Public Use
  Company Number: JP-TEVA-2020-JP-004330J

PATIENT
  Age: 25 Year
  Sex: Female
  Weight: 40 kg

DRUGS (12)
  1. FLUCONAZOLE INTRAVENOUS 200MG ^TEVA^ [Suspect]
     Active Substance: FLUCONAZOLE
     Indication: PRODUCT USED FOR UNKNOWN INDICATION
     Dosage: DOSAGE IS UNKNOWN
     Route: 065
  2. ACTONEL [Concomitant]
     Active Substance: RISEDRONATE SODIUM
     Indication: OSTEOPOROSIS
     Dosage: DOSAGE IS UNKNOWN
     Route: 065
  3. PREDNISOLONE TABLETS 5MG. [Suspect]
     Active Substance: PREDNISOLONE
     Indication: LEUKAEMIA
     Dosage: 60 MILLIGRAM DAILY;
     Route: 065
  4. DECADRON [Concomitant]
     Active Substance: DEXAMETHASONE
     Dosage: DOSAGE IS UNKNOWN
     Route: 065
  5. OMEPRAZOLE TABLET 20MG ^TYK^ [Suspect]
     Active Substance: OMEPRAZOLE
     Indication: PRODUCT USED FOR UNKNOWN INDICATION
     Dosage: STOMACH MEDICATION; DOSAGE IS UNKNOWN
     Route: 065
  6. VANCOMYCIN HYDROCHLORIDE POWDER 0.5G ^TAIYO^ [Suspect]
     Active Substance: VANCOMYCIN HYDROCHLORIDE
     Indication: PRODUCT USED FOR UNKNOWN INDICATION
     Dosage: DOSAGE IS UNKNOWN
     Route: 065
  7. URSODEOXYCHOLIC ACID TABLET 100MG ^TEVA^ [Suspect]
     Active Substance: URSODIOL
     Indication: PRODUCT USED FOR UNKNOWN INDICATION
     Dosage: DOSAGE IS UNKNOWN
     Route: 065
  8. FEBURIC [Concomitant]
     Active Substance: FEBUXOSTAT
     Indication: BLOOD URIC ACID INCREASED
     Dosage: DOSAGE IS UNKNOWN
     Route: 065
  9. BAKTAR [Concomitant]
     Active Substance: SULFAMETHOXAZOLE\TRIMETHOPRIM
     Dosage: DOSAGE IS UNKNOWN
     Route: 065
  10. MYSLEE [Concomitant]
     Active Substance: ZOLPIDEM TARTRATE
     Indication: INSOMNIA
     Dosage: DOSAGE IS UNKNOWN
     Route: 065
  11. ACETAMINOPHEN FINE GRANULES 20% (TYK) [Suspect]
     Active Substance: ACETAMINOPHEN
     Indication: PRODUCT USED FOR UNKNOWN INDICATION
     Dosage: DOSAGE IS UNKNOWN
     Route: 065
  12. PREDONINE [Concomitant]
     Active Substance: PREDNISOLONE
     Dosage: DOSAGE IS UNKNOWN
     Route: 041

REACTIONS (10)
  - Insomnia [Unknown]
  - Mucormycosis [Unknown]
  - Osteoporosis [Unknown]
  - Blood uric acid increased [Unknown]
  - Menstrual disorder [Unknown]
  - Constipation [Unknown]
  - Oophorectomy [Unknown]
  - Gait inability [Unknown]
  - Death [Fatal]
  - Feeding disorder [Unknown]
